FAERS Safety Report 9376653 (Version 1)
Quarter: 2013Q3

REPORT INFORMATION
  Report Type: Spontaneous
  Country: US (occurrence: US)
  Receive Date: 20130701
  Receipt Date: 20130701
  Transmission Date: 20140515
  Serious: Yes (Other)
  Sender: FDA-Public Use
  Company Number: US-JNJCP-30000168523

PATIENT
  Sex: Female
  Weight: 58 kg

DRUGS (12)
  1. NEUTROGENA SKIN CLEARING MINERAL POWDER [Suspect]
     Dosage: ONCE A DAY
     Route: 047
     Dates: start: 20130623, end: 20130623
  2. NO DRUG NAME [Concomitant]
  3. NO DRUG NAME [Concomitant]
  4. NO DRUG NAME [Concomitant]
  5. NO DRUG NAME [Concomitant]
  6. NO DRUG NAME [Concomitant]
  7. NO DRUG NAME [Concomitant]
  8. NO DRUG NAME [Concomitant]
  9. NO DRUG NAME [Concomitant]
  10. NO DRUG NAME [Concomitant]
  11. NO DRUG NAME [Concomitant]
  12. NO DRUG NAME [Concomitant]

REACTIONS (4)
  - Accidental exposure to product [Recovering/Resolving]
  - Injury corneal [Recovering/Resolving]
  - Dry eye [Recovering/Resolving]
  - Product quality issue [Unknown]
